FAERS Safety Report 7410777-9 (Version None)
Quarter: 2011Q2

REPORT INFORMATION
  Report Type: 
  Country: None (occurrence: None)
  Receive Date: 20110413
  Receipt Date: 20110404
  Transmission Date: 20111010
  Serious: Yes (Death)
  Sender: FDA-Public Use
  Company Number: KR-US-EMD SERONO, INC.-7049163

PATIENT
  Age: 47 Year
  Sex: Female

DRUGS (2)
  1. REBIF [Suspect]
     Dates: start: 20110304, end: 20110304
  2. REBIF [Suspect]
     Indication: MULTIPLE SCLEROSIS
     Dates: start: 20110302, end: 20110302

REACTIONS (1)
  - HAEMATOLOGICAL MALIGNANCY [None]
